FAERS Safety Report 24968445 (Version 2)
Quarter: 2025Q2

REPORT INFORMATION
  Report Type: Report from Study
  Country: AU (occurrence: AU)
  Receive Date: 20250214
  Receipt Date: 20250417
  Transmission Date: 20250716
  Serious: Yes (Hospitalization, Other)
  Sender: TAKEDA
  Company Number: AU-TAKEDA-2024TUS056524

PATIENT
  Age: 65 Year
  Sex: Female

DRUGS (4)
  1. VEDOLIZUMAB [Suspect]
     Active Substance: VEDOLIZUMAB
     Indication: Crohn^s disease
  2. VEDOLIZUMAB [Suspect]
     Active Substance: VEDOLIZUMAB
  3. VEDOLIZUMAB [Suspect]
     Active Substance: VEDOLIZUMAB
  4. AMOXICILLIN\CLAVULANIC ACID [Suspect]
     Active Substance: AMOXICILLIN\CLAVULANIC ACID
     Indication: Influenza like illness

REACTIONS (8)
  - Hypertrophic cardiomyopathy [Recovered/Resolved with Sequelae]
  - Myocardial infarction [Recovered/Resolved with Sequelae]
  - Pneumonia [Recovered/Resolved]
  - Drug hypersensitivity [Recovered/Resolved]
  - Influenza like illness [Recovered/Resolved]
  - Abdominal pain lower [Recovered/Resolved]
  - Hypotension [Recovered/Resolved]
  - Flatulence [Recovered/Resolved]

NARRATIVE: CASE EVENT DATE: 20240519
